FAERS Safety Report 8171804-7 (Version None)
Quarter: 2012Q1

REPORT INFORMATION
  Report Type: 
  Country: None (occurrence: None)
  Receive Date: 20120228
  Receipt Date: 20120214
  Transmission Date: 20120608
  Serious: Yes (Death, Hospitalization, Other)
  Sender: FDA-Public Use
  Company Number: FR-GLAXOSMITHKLINE-B0772431B

PATIENT
  Sex: Female
  Weight: 46 kg

DRUGS (1)
  1. VOTRIENT [Suspect]
     Indication: GASTROINTESTINAL CANCER METASTATIC
     Dosage: 800MG PER DAY
     Route: 048
     Dates: start: 20111122

REACTIONS (3)
  - GENERAL PHYSICAL HEALTH DETERIORATION [None]
  - PULMONARY EMBOLISM [None]
  - PELVIC FRACTURE [None]
